FAERS Safety Report 7799630 (Version 6)
Quarter: 2018Q4

REPORT INFORMATION
  Report Type: Report from Study
  Country: JP (occurrence: JP)
  Receive Date: 20110204
  Receipt Date: 20181005
  Transmission Date: 20190205
  Serious: Yes (Death, Hospitalization)
  Sender: FDA-Public Use
  Company Number: PHHY2011JP06421

PATIENT
  Age: 61 Year
  Sex: Male

DRUGS (6)
  1. GAMOFA D [Concomitant]
     Active Substance: FAMOTIDINE
     Indication: PROPHYLAXIS
     Dosage: 40 MG
     Dates: start: 20090812
  2. TASIGNA [Suspect]
     Active Substance: NILOTINIB
     Dosage: 400 MG, BID
     Route: 048
     Dates: start: 20090623, end: 20111025
  3. SELBEX [Concomitant]
     Active Substance: TEPRENONE
     Indication: PROPHYLAXIS
     Dosage: 1.5 G
     Route: 048
     Dates: start: 20090804, end: 20111025
  4. TASIGNA [Suspect]
     Active Substance: NILOTINIB
     Indication: CHRONIC MYELOID LEUKAEMIA
     Dosage: 800 MG, QD
     Route: 048
     Dates: start: 20090623, end: 20111025
  5. GASTER [Concomitant]
     Active Substance: FAMOTIDINE
     Indication: PROPHYLAXIS
     Dosage: 40 MG
     Route: 048
     Dates: start: 20111025
  6. PLETAAL [Concomitant]
     Active Substance: CILOSTAZOL
     Indication: PRODUCT USED FOR UNKNOWN INDICATION
     Dosage: 200 MG
     Route: 048
     Dates: start: 20111025

REACTIONS (18)
  - Renal artery stenosis [Fatal]
  - Blood glucose increased [Recovered/Resolved]
  - Myalgia [Recovered/Resolved]
  - Sudden hearing loss [Recovered/Resolved]
  - Hypoacusis [Recovered/Resolved]
  - Blood urea increased [Recovered/Resolved]
  - Platelet count decreased [Recovered/Resolved]
  - Blood phosphorus increased [Recovered/Resolved]
  - Blood urea increased [Not Recovered/Not Resolved]
  - Cerebral infarction [Recovering/Resolving]
  - Epistaxis [Recovered/Resolved]
  - Concomitant disease aggravated [Not Recovered/Not Resolved]
  - Red blood cell count decreased [Not Recovered/Not Resolved]
  - Exfoliative rash [Recovering/Resolving]
  - Blood alkaline phosphatase increased [Recovered/Resolved]
  - Electrocardiogram QT prolonged [Recovered/Resolved]
  - Electrocardiogram QT prolonged [Recovered/Resolved]
  - Blood creatinine increased [Not Recovered/Not Resolved]

NARRATIVE: CASE EVENT DATE: 20090630
